FAERS Safety Report 10657221 (Version 1)
Quarter: 2014Q4

REPORT INFORMATION
  Report Type: Spontaneous
  Country: US (occurrence: None)
  Receive Date: 20141216
  Receipt Date: 20141216
  Transmission Date: 20150529
  Serious: No
  Sender: FDA-Public Use
  Company Number: None

PATIENT

DRUGS (1)
  1. LYRICA [Suspect]
     Active Substance: PREGABALIN
     Dates: end: 20141209

REACTIONS (4)
  - Musculoskeletal disorder [None]
  - Dysstasia [None]
  - Gait disturbance [None]
  - Influenza [None]

NARRATIVE: CASE EVENT DATE: 20141209
